FAERS Safety Report 7233290-0 (Version None)
Quarter: 2011Q1

REPORT INFORMATION
  Report Type: 
  Country: None (occurrence: None)
  Receive Date: 20110119
  Receipt Date: 20110112
  Transmission Date: 20110831
  Serious: Yes (Hospitalization)
  Sender: FDA-Public Use
  Company Number: US-B.I. PHARMACEUTICALS,INC./RIDGEFIELD-2011-BP-00910BP

PATIENT
  Age: 76 Year
  Sex: Female

DRUGS (2)
  1. COUMADIN [Concomitant]
  2. PRADAXA [Suspect]

REACTIONS (1)
  - DYSPNOEA [None]
